FAERS Safety Report 21614269 (Version 1)
Quarter: 2022Q4

REPORT INFORMATION
  Report Type: Spontaneous
  Country: CH (occurrence: CH)
  Receive Date: 20221118
  Receipt Date: 20221118
  Transmission Date: 20230112
  Serious: Yes (Other)
  Sender: FDA-Public Use
  Company Number: CH-NEBO-PC009340

PATIENT
  Sex: Female

DRUGS (2)
  1. IRON ISOMALTOSIDE 1000 [Suspect]
     Active Substance: IRON ISOMALTOSIDE 1000
     Indication: Haemoglobin decreased
     Dosage: DILUTED IN 100 ML OF NACL
     Route: 050
     Dates: start: 20220701, end: 20220701
  2. SERTALIN [Concomitant]
     Indication: Product used for unknown indication

REACTIONS (7)
  - Hot flush [Recovered/Resolved]
  - Dyspnoea [Recovered/Resolved]
  - Maternal exposure during pregnancy [Recovered/Resolved]
  - Pre-eclampsia [Unknown]
  - Live birth [Recovered/Resolved]
  - Caesarean section [Recovered/Resolved]
  - Small for dates baby [Recovered/Resolved]

NARRATIVE: CASE EVENT DATE: 20220701
